FAERS Safety Report 8172911 (Version 2)
Quarter: 2013Q1

REPORT INFORMATION
  Report Type: Spontaneous
  Country: VE (occurrence: VE)
  Receive Date: 20111007
  Receipt Date: 20130227
  Transmission Date: 20140127
  Serious: Yes (Other)
  Sender: FDA-Public Use
  Company Number: PHHY2011VE87280

PATIENT
  Age: 60 Year
  Sex: Female

DRUGS (4)
  1. ACLASTA [Suspect]
     Indication: OSTEOPOROSIS
     Dosage: 5 MG, ONCE A YEAR
     Route: 042
     Dates: start: 20090430
  2. ACLASTA [Suspect]
     Dosage: 5 MG, ONCE A YEAR
     Route: 042
     Dates: start: 2011
  3. BENICAR HCT [Concomitant]
     Indication: HYPERTENSION
     Dosage: 400MG-12.5MG DAILY
     Route: 048
  4. IDENA [Concomitant]
     Indication: MINERAL SUPPLEMENTATION
     Dosage: 150 MG, UNK
     Route: 048
     Dates: start: 200904

REACTIONS (2)
  - Fall [Recovered/Resolved]
  - Ligament sprain [Recovered/Resolved]
